FAERS Safety Report 4976097-7 (Version None)
Quarter: 2006Q2

REPORT INFORMATION
  Report Type: 
  Country: None (occurrence: None)
  Receive Date: 20060411
  Receipt Date: 20060324
  Transmission Date: 20061013
  Serious: Yes (Other)
  Sender: FDA-Public Use
  Company Number: US200603006364

PATIENT
  Age: 73 Year
  Sex: Female

DRUGS (6)
  1. FORTEO [Suspect]
     Dates: start: 20050101
  2. EVISTA [Suspect]
     Dosage: ORAL
     Route: 048
     Dates: start: 20020101, end: 20060301
  3. FORTEO PEN (FORTEO PEN) PEN, DISPOSABLE [Concomitant]
  4. SYNTHROID [Concomitant]
  5. COREG (CARVEDIOL) [Concomitant]
  6. LISINOPRIL [Concomitant]

REACTIONS (2)
  - BREAST CANCER FEMALE [None]
  - PHARMACEUTICAL PRODUCT COMPLAINT [None]
